FAERS Safety Report 6358599-4 (Version None)
Quarter: 2009Q3

REPORT INFORMATION
  Report Type: 
  Country: None (occurrence: None)
  Receive Date: 20090916
  Receipt Date: 20090914
  Transmission Date: 20100115
  Serious: Yes (Other)
  Sender: FDA-Public Use
  Company Number: US-ALLERGAN-0912783US

PATIENT
  Age: 58 Year
  Sex: Female

DRUGS (2)
  1. RESTASIS [Suspect]
     Indication: DRY EYE
     Dosage: 1 GTT, BID
     Route: 047
  2. RESTASIS [Suspect]
     Dosage: 1 GTT, BID
     Route: 047
     Dates: start: 20090801, end: 20090101

REACTIONS (3)
  - EYE IRRITATION [None]
  - HEADACHE [None]
  - PHOTOPHOBIA [None]
